FAERS Safety Report 4972511-1 (Version None)
Quarter: 2006Q2

REPORT INFORMATION
  Report Type: 
  Country: None (occurrence: None)
  Receive Date: 20060413
  Receipt Date: 20051109
  Transmission Date: 20061013
  Serious: Yes (Hospitalization)
  Sender: FDA-Public Use
  Company Number: US-MERCK-0511USA01568

PATIENT
  Age: 54 Year
  Sex: Male
  Weight: 95 kg

DRUGS (10)
  1. VIOXX [Suspect]
     Indication: OSTEOARTHRITIS
     Route: 048
     Dates: start: 20010103, end: 20040901
  2. ATACAND [Concomitant]
     Indication: HYPERTENSION
     Route: 065
     Dates: start: 20000928, end: 20040201
  3. HYDROCHLOROTHIAZIDE [Concomitant]
     Indication: NEPHROLITHIASIS
     Route: 065
     Dates: start: 20001028
  4. LIPITOR [Concomitant]
     Indication: BLOOD CHOLESTEROL INCREASED
     Route: 065
     Dates: start: 20000926, end: 20040201
  5. ACETAMINOPHEN AND CODEINE [Concomitant]
     Indication: PAIN
     Route: 065
     Dates: start: 19990401, end: 20020101
  6. VIAGRA [Concomitant]
     Route: 065
  7. DETROL [Concomitant]
     Route: 065
  8. NEURONTIN [Concomitant]
     Route: 065
  9. IBUPROFEN [Concomitant]
     Route: 065
     Dates: start: 19990901, end: 20040103
  10. ACETAMINOPHEN AND HYDROCODONE BITARTRATE [Concomitant]
     Route: 065
     Dates: start: 19990401, end: 20020101

REACTIONS (6)
  - ACUTE MYOCARDIAL INFARCTION [None]
  - ARTHROPATHY [None]
  - CHEST PAIN [None]
  - PROSTATE CANCER [None]
  - RIB FRACTURE [None]
  - TENDONITIS [None]
